FAERS Safety Report 5807187-4 (Version None)
Quarter: 2008Q3

REPORT INFORMATION
  Report Type: 
  Country: None (occurrence: None)
  Receive Date: 20080711
  Receipt Date: 20080703
  Transmission Date: 20090109
  Serious: Yes (Other)
  Sender: FDA-Public Use
  Company Number: B0361159A

PATIENT
  Sex: Female

DRUGS (5)
  1. PAROXETINE HCL [Suspect]
     Dosage: 20MG PER DAY
     Route: 048
     Dates: start: 20010613, end: 20030701
  2. PROPRANOLOL [Concomitant]
     Dosage: 40MG PER DAY
     Route: 065
  3. VENLAFAXINE HCL [Concomitant]
     Route: 065
     Dates: start: 20030801
  4. ZOPLICONE [Concomitant]
     Indication: INSOMNIA
     Dosage: 7.5MG AT NIGHT
     Route: 065
     Dates: start: 20031201
  5. DESOGESTREL AND ETHINYL ESTRADIOL [Concomitant]
     Indication: CONTRACEPTION
     Route: 048
     Dates: start: 20020411

REACTIONS (33)
  - AGGRESSION [None]
  - AGORAPHOBIA [None]
  - ANGER [None]
  - ANXIETY [None]
  - BONE PAIN [None]
  - COMPULSIONS [None]
  - CRYING [None]
  - DEPRESSED MOOD [None]
  - DEPRESSION [None]
  - DISTURBANCE IN ATTENTION [None]
  - DIZZINESS [None]
  - DYSPHAGIA [None]
  - HALLUCINATION [None]
  - HEADACHE [None]
  - HOMICIDAL IDEATION [None]
  - HYPERHIDROSIS [None]
  - INCREASED APPETITE [None]
  - INSOMNIA [None]
  - MALAISE [None]
  - MOOD ALTERED [None]
  - MUSCLE SPASMS [None]
  - MYALGIA [None]
  - NIGHTMARE [None]
  - PANIC ATTACK [None]
  - PARAESTHESIA [None]
  - PARANOIA [None]
  - PERSECUTORY DELUSION [None]
  - POOR QUALITY SLEEP [None]
  - SLEEP DISORDER [None]
  - SUICIDAL IDEATION [None]
  - VISUAL IMPAIRMENT [None]
  - WEIGHT INCREASED [None]
  - WITHDRAWAL SYNDROME [None]
